FAERS Safety Report 19137605 (Version 2)
Quarter: 2021Q2

REPORT INFORMATION
  Report Type: Report from Study
  Country: CA (occurrence: CA)
  Receive Date: 20210414
  Receipt Date: 20210513
  Transmission Date: 20210717
  Serious: Yes (Hospitalization)
  Sender: FDA-Public Use
  Company Number: CA-KARYOPHARM-2021KPT000488

PATIENT
  Age: 27 Year
  Sex: Female
  Weight: 39 kg

DRUGS (2)
  1. SELINEXOR [Suspect]
     Active Substance: SELINEXOR
     Indication: NEUROFIBROSARCOMA
     Dosage: 60 MG, WEEKLY
     Route: 048
     Dates: start: 20210304
  2. HYDROMORPHONE [Concomitant]
     Active Substance: HYDROMORPHONE
     Indication: PAIN
     Dosage: 2 MG, Q4H
     Dates: start: 20210202

REACTIONS (1)
  - Tumour pain [Recovered/Resolved]

NARRATIVE: CASE EVENT DATE: 20210324
